FAERS Safety Report 5003848-8 (Version None)
Quarter: 2006Q2

REPORT INFORMATION
  Report Type: 
  Country: None (occurrence: None)
  Receive Date: 20060515
  Receipt Date: 20060508
  Transmission Date: 20061013
  Serious: Yes (Other)
  Sender: FDA-Public Use
  Company Number: 2006061464

PATIENT
  Age: 67 Year
  Sex: Male

DRUGS (1)
  1. LIPITOR [Suspect]
     Indication: ILL-DEFINED DISORDER

REACTIONS (2)
  - ALCOHOL INTERACTION [None]
  - HEPATIC ENZYME INCREASED [None]
